FAERS Safety Report 7062062-5 (Version None)
Quarter: 2010Q4

REPORT INFORMATION
  Report Type: 
  Country: None (occurrence: None)
  Receive Date: 20101026
  Receipt Date: 20101022
  Transmission Date: 20110411
  Serious: Yes (Life-Threatening, Hospitalization)
  Sender: FDA-Public Use
  Company Number: B0664376A

PATIENT
  Sex: Male

DRUGS (8)
  1. AUGMENTIN '125' [Suspect]
     Indication: ANTIBIOTIC THERAPY
     Dosage: 1G THREE TIMES PER DAY
     Route: 042
     Dates: start: 20100517, end: 20100521
  2. AUGMENTIN '125' [Suspect]
     Indication: ANTIBIOTIC THERAPY
     Dosage: 1G THREE TIMES PER DAY
     Route: 048
     Dates: start: 20100521, end: 20100522
  3. CLINDAMYCIN HCL [Suspect]
     Indication: ANTIBIOTIC THERAPY
     Dosage: 600MG THREE TIMES PER DAY
     Route: 048
     Dates: start: 20100517, end: 20100523
  4. PYOSTACINE [Suspect]
     Indication: ANTIBIOTIC THERAPY
     Dosage: 2G PER DAY
     Route: 048
     Dates: start: 20100511, end: 20100517
  5. BETADINE [Concomitant]
     Route: 065
     Dates: start: 20100511
  6. COAPROVEL [Concomitant]
     Route: 065
  7. FLUDEX [Concomitant]
     Route: 065
  8. FENOFIBRATE [Concomitant]
     Route: 065

REACTIONS (21)
  - AORTIC STENOSIS [None]
  - BLOOD PRESSURE INCREASED [None]
  - CHILLS [None]
  - DERMATITIS EXFOLIATIVE [None]
  - GENERAL PHYSICAL HEALTH DETERIORATION [None]
  - HYPERCAPNIA [None]
  - HYPERSENSITIVITY [None]
  - HYPOXIA [None]
  - LEFT VENTRICULAR FAILURE [None]
  - LEFT VENTRICULAR HYPERTROPHY [None]
  - MITRAL VALVE INCOMPETENCE [None]
  - OXYGEN SATURATION DECREASED [None]
  - PHLEBITIS [None]
  - PYREXIA [None]
  - RASH ERYTHEMATOUS [None]
  - RENAL FAILURE ACUTE [None]
  - RESPIRATORY DISTRESS [None]
  - SKIN EXFOLIATION [None]
  - SUPERINFECTION [None]
  - TOXIC SKIN ERUPTION [None]
  - VENOUS OCCLUSION [None]
